FAERS Safety Report 11191250 (Version 1)
Quarter: 2015Q2

REPORT INFORMATION
  Report Type: Spontaneous
  Country: US (occurrence: US)
  Receive Date: 20150615
  Receipt Date: 20150615
  Transmission Date: 20150821
  Serious: No
  Sender: FDA-Public Use
  Company Number: US-009507513-1506USA002871

PATIENT
  Sex: Female

DRUGS (1)
  1. NASONEX [Suspect]
     Active Substance: MOMETASONE FUROATE
     Indication: CHRONIC SINUSITIS
     Dosage: TWO SPRAYS IN EACH NOSTRIL DAILY
     Route: 045
     Dates: start: 2000

REACTIONS (3)
  - Sinusitis [Unknown]
  - Drug dose omission [Unknown]
  - Product quality issue [Unknown]
